FAERS Safety Report 16479478 (Version 1)
Quarter: 2019Q2

REPORT INFORMATION
  Report Type: Spontaneous
  Country: US (occurrence: US)
  Receive Date: 20190626
  Receipt Date: 20190626
  Transmission Date: 20190711
  Serious: No
  Sender: FDA-Public Use
  Company Number: US-BIOGEN-2019BI00755346

PATIENT
  Age: 50 Year
  Sex: Female
  Weight: 79.9 kg

DRUGS (3)
  1. TECFIDERA [Suspect]
     Active Substance: DIMETHYL FUMARATE
     Indication: MULTIPLE SCLEROSIS
     Route: 048
     Dates: start: 20190522
  2. LOSARTAN. [Concomitant]
     Active Substance: LOSARTAN
     Route: 065
  3. LABETOLOL [Concomitant]
     Active Substance: LABETALOL HYDROCHLORIDE
     Route: 065

REACTIONS (2)
  - Depressed mood [Unknown]
  - Product dose omission [Unknown]

NARRATIVE: CASE EVENT DATE: 20190522
